FAERS Safety Report 24327567 (Version 2)
Quarter: 2024Q3

REPORT INFORMATION
  Report Type: Report from Study
  Country: CA (occurrence: CA)
  Receive Date: 20240917
  Receipt Date: 20240925
  Transmission Date: 20241016
  Serious: Yes (Hospitalization)
  Sender: ROCHE
  Company Number: CA-002147023-NVSC2024CA146244

PATIENT
  Age: 16 Year
  Sex: Male

DRUGS (1)
  1. XOLAIR [Suspect]
     Active Substance: OMALIZUMAB
     Indication: Chronic spontaneous urticaria
     Dosage: 300 MG, 4 WEEKS
     Route: 050
     Dates: start: 20240614

REACTIONS (3)
  - Anaphylactic reaction [Recovering/Resolving]
  - Nausea [Unknown]
  - Sensory loss [Unknown]

NARRATIVE: CASE EVENT DATE: 20240614
